FAERS Safety Report 5991195-7 (Version None)
Quarter: 2008Q4

REPORT INFORMATION
  Report Type: 
  Country: None (occurrence: None)
  Receive Date: 20081211
  Receipt Date: 20081128
  Transmission Date: 20090506
  Serious: Yes (Death)
  Sender: FDA-Public Use
  Company Number: FR-CELGENEUS-THLFR200800133

PATIENT
  Age: 84 Year
  Sex: Male

DRUGS (1)
  1. THALIDOMIDE LAPHAL [Suspect]
     Indication: MULTIPLE MYELOMA
     Route: 048
     Dates: end: 20080101

REACTIONS (1)
  - SUBDURAL HAEMATOMA [None]
